FAERS Safety Report 25943360 (Version 3)
Quarter: 2025Q4

REPORT INFORMATION
  Report Type: Other
  Country: JP (occurrence: JP)
  Receive Date: 20251021
  Receipt Date: 20251121
  Transmission Date: 20260118
  Serious: Yes (Other)
  Sender: ESTEVE
  Company Number: JP-Esteve Pharmaceuticals SA-2186971

PATIENT
  Age: 65 Year
  Sex: Male

DRUGS (8)
  1. METOPIRONE [Suspect]
     Active Substance: METYRAPONE
     Indication: Medullary thyroid cancer
  2. SULFAMETHOXAZOLE\TRIMETHOPRIM [Suspect]
     Active Substance: SULFAMETHOXAZOLE\TRIMETHOPRIM
  3. SELPERCATINIB [Concomitant]
     Active Substance: SELPERCATINIB
  4. VANDETANIB [Concomitant]
     Active Substance: VANDETANIB
  5. METOPIRONE [Suspect]
     Active Substance: METYRAPONE
  6. METOPIRONE [Suspect]
     Active Substance: METYRAPONE
  7. METOPIRONE [Suspect]
     Active Substance: METYRAPONE
  8. METOPIRONE [Suspect]
     Active Substance: METYRAPONE

REACTIONS (3)
  - Immune reconstitution inflammatory syndrome [Recovering/Resolving]
  - Pneumocystis jirovecii pneumonia [Recovered/Resolved]
  - Off label use [Unknown]
